FAERS Safety Report 21130353 (Version 2)
Quarter: 2022Q3

REPORT INFORMATION
  Report Type: Spontaneous
  Country: AU (occurrence: AU)
  Receive Date: 20220726
  Receipt Date: 20220811
  Transmission Date: 20221027
  Serious: Yes (Other)
  Sender: FDA-Public Use
  Company Number: AU-009507513-2207AUS006756

PATIENT
  Age: 81 Year
  Sex: Female
  Weight: 66 kg

DRUGS (7)
  1. LAGEVRIO [Interacting]
     Active Substance: MOLNUPIRAVIR
     Indication: COVID-19
     Dosage: 400 MILLIGRAM, BID
     Route: 048
     Dates: start: 20220718, end: 20220723
  2. XARELTO [Concomitant]
     Active Substance: RIVAROXABAN
     Indication: Haemorrhage
     Dosage: 15 MILLIGRAM, QD, YEARS
     Route: 048
     Dates: end: 20220720
  3. PREDNISOLONE [Concomitant]
     Active Substance: PREDNISOLONE
     Dosage: 7.5 MILLIGRAM, QD;START DATE: YEARS; INDICATION: INCREASED TO 15MG DAILY
     Route: 048
     Dates: end: 20220720
  4. PLAQUENIL [Concomitant]
     Active Substance: HYDROXYCHLOROQUINE SULFATE
     Dosage: 400 MILLIGRAM; M/W/F; START DATE: 6 WEEKS
     Route: 048
  5. PLAQUENIL [Concomitant]
     Active Substance: HYDROXYCHLOROQUINE SULFATE
     Dosage: 200 MILLIGRAM; TU/TH/SAT/SUN; START DATE: 6 WEEKS
     Route: 048
  6. LYRICA [Concomitant]
     Active Substance: PREGABALIN
  7. ROCALTROL [Concomitant]
     Active Substance: CALCITRIOL

REACTIONS (6)
  - Rectal haemorrhage [Recovered/Resolved]
  - Epistaxis [Recovered/Resolved]
  - Taste disorder [Recovered/Resolved]
  - Parosmia [Recovered/Resolved]
  - Drug interaction [Unknown]
  - Product use issue [Unknown]

NARRATIVE: CASE EVENT DATE: 20220701
